FAERS Safety Report 19855273 (Version 1)
Quarter: 2021Q3

REPORT INFORMATION
  Report Type: Spontaneous
  Country: US (occurrence: US)
  Receive Date: 20210917
  Receipt Date: 20210917
  Transmission Date: 20211014
  Serious: Yes (Hospitalization)
  Sender: FDA-Public Use
  Company Number: None

PATIENT
  Sex: Male
  Weight: 13.2 kg

DRUGS (4)
  1. ETOPOSIDE (VP? 16) 319.2 MG [Suspect]
     Active Substance: ETOPOSIDE
     Dates: end: 20210611
  2. CISPLATIN 520MG [Suspect]
     Active Substance: CISPLATIN
     Dates: end: 20210611
  3. G?CSF (FILGRASTIM, AMGEN) 59.55 MCG [Suspect]
     Active Substance: FILGRASTIM
     Dates: end: 20210610
  4. MELPHALAN 72MG [Suspect]
     Active Substance: MELPHALAN
     Dates: end: 20210610

REACTIONS (6)
  - Respiratory distress [None]
  - Tachypnoea [None]
  - Pulmonary vascular disorder [None]
  - Pulmonary oedema [None]
  - Hypoxia [None]
  - Pneumonitis [None]

NARRATIVE: CASE EVENT DATE: 20210818
